FAERS Safety Report 13686317 (Version 1)
Quarter: 2017Q2

REPORT INFORMATION
  Report Type: Spontaneous
  Country: US (occurrence: US)
  Receive Date: 20170623
  Receipt Date: 20170623
  Transmission Date: 20170830
  Serious: Yes (Other)
  Sender: FDA-Public Use
  Company Number: US-ROCHE-1161397

PATIENT
  Age: 69 Year
  Sex: Male

DRUGS (2)
  1. MYCOPHENOLATE MOFETIL. [Suspect]
     Active Substance: MYCOPHENOLATE MOFETIL
     Indication: PROPHYLAXIS AGAINST TRANSPLANT REJECTION
     Route: 065
  2. MYCOPHENOLATE MOFETIL. [Suspect]
     Active Substance: MYCOPHENOLATE MOFETIL
     Route: 065

REACTIONS (9)
  - Staphylococcal infection [Unknown]
  - Candida infection [Unknown]
  - BK virus infection [Unknown]
  - Device related infection [Unknown]
  - Asthenia [Unknown]
  - Myalgia [Unknown]
  - Osteomyelitis [Unknown]
  - Abdominal pain [Unknown]
  - Bradycardia [Unknown]
